FAERS Safety Report 5568731-8 (Version None)
Quarter: 2007Q4

REPORT INFORMATION
  Report Type: 
  Country: None (occurrence: None)
  Receive Date: 20071220
  Receipt Date: 20061206
  Transmission Date: 20080405
  Serious: No
  Sender: FDA-Public Use
  Company Number: A0630617A

PATIENT
  Age: 71 Year
  Sex: Male

DRUGS (3)
  1. AVODART [Suspect]
     Indication: BENIGN PROSTATIC HYPERPLASIA
     Dosage: .5TAB PER DAY
     Route: 048
     Dates: start: 20061115
  2. VITAMIN E [Concomitant]
  3. SAW PALMETTO [Concomitant]

REACTIONS (1)
  - DYSGEUSIA [None]
